FAERS Safety Report 14689094 (Version 2)
Quarter: 2018Q2

REPORT INFORMATION
  Report Type: Report from Study
  Country: US (occurrence: US)
  Receive Date: 20180328
  Receipt Date: 20180403
  Transmission Date: 20180711
  Serious: Yes (Death, Other)
  Sender: FDA-Public Use
  Company Number: US-ROCHE-2095245

PATIENT

DRUGS (1)
  1. BEVACIZUMAB. [Suspect]
     Active Substance: BEVACIZUMAB
     Indication: PROSTATE CANCER
     Route: 065

REACTIONS (8)
  - Myocardial ischaemia [Unknown]
  - Myocardial infarction [Unknown]
  - Hypotension [Recovered/Resolved]
  - Hyperkalaemia [Recovered/Resolved]
  - Fatigue [Recovered/Resolved]
  - Renal failure [Unknown]
  - Aortic injury [Fatal]
  - Cerebral ischaemia [Recovered/Resolved]
